FAERS Safety Report 12498481 (Version 1)
Quarter: 2016Q2

REPORT INFORMATION
  Report Type: Spontaneous
  Country: KZ (occurrence: KZ)
  Receive Date: 20160627
  Receipt Date: 20160627
  Transmission Date: 20160815
  Serious: Yes (Other)
  Sender: FDA-Public Use
  Company Number: KZ-ABBVIE-16K-230-1658977-00

PATIENT
  Age: 14 Year
  Sex: Female
  Weight: 42 kg

DRUGS (3)
  1. METOJECT [Concomitant]
     Active Substance: METHOTREXATE SODIUM
     Indication: JUVENILE IDIOPATHIC ARTHRITIS
  2. METOJECT [Concomitant]
     Active Substance: METHOTREXATE SODIUM
  3. ADALIMUMAB [Suspect]
     Active Substance: ADALIMUMAB
     Indication: JUVENILE IDIOPATHIC ARTHRITIS
     Route: 058
     Dates: start: 20160415, end: 20160610

REACTIONS (3)
  - Uterine haemorrhage [Recovered/Resolved]
  - Uterine haemorrhage [Recovered/Resolved]
  - Platelet aggregation abnormal [Recovering/Resolving]

NARRATIVE: CASE EVENT DATE: 20160424
